FAERS Safety Report 23964780 (Version 1)
Quarter: 2024Q2

REPORT INFORMATION
  Report Type: Other
  Country: AU (occurrence: None)
  Receive Date: 20240612
  Receipt Date: 20240612
  Transmission Date: 20240716
  Serious: Yes (Death, Other)
  Sender: FDA-Public Use
  Company Number: AU-ROCHE-3575558

PATIENT
  Age: 53 Year

DRUGS (1)
  1. BEVACIZUMAB [Suspect]
     Active Substance: BEVACIZUMAB
     Indication: Product used for unknown indication
     Route: 065
     Dates: start: 20220729, end: 20230914

REACTIONS (2)
  - Posterior reversible encephalopathy syndrome [Unknown]
  - Metastatic malignant melanoma [Fatal]

NARRATIVE: CASE EVENT DATE: 20231211
